FAERS Safety Report 19656714 (Version 1)
Quarter: 2021Q3

REPORT INFORMATION
  Report Type: Spontaneous
  Country: CN (occurrence: CN)
  Receive Date: 20210804
  Receipt Date: 20210804
  Transmission Date: 20211014
  Serious: Yes (Hospitalization, Other)
  Sender: FDA-Public Use
  Company Number: CN-PFIZER INC-202100935568

PATIENT
  Age: 98 Year
  Sex: Female
  Weight: 45 kg

DRUGS (2)
  1. PIPERACILLIN/TAZOBACTAM [Suspect]
     Active Substance: PIPERACILLIN SODIUM\TAZOBACTAM SODIUM
     Indication: PNEUMONIA
     Dosage: 4.500 G, 3X/DAY
     Route: 041
     Dates: start: 20210623, end: 20210629
  2. ISEPAMICIN SULFATE. [Suspect]
     Active Substance: ISEPAMICIN SULFATE
     Indication: PNEUMONIA
     Dosage: 400.0000 MG, 1X/DAY
     Route: 041
     Dates: start: 20210622, end: 20210629

REACTIONS (1)
  - Acute kidney injury [Not Recovered/Not Resolved]

NARRATIVE: CASE EVENT DATE: 20210626
